FAERS Safety Report 9735550 (Version 1)
Quarter: 2013Q4

REPORT INFORMATION
  Report Type: Spontaneous
  Country: US (occurrence: None)
  Receive Date: 20131205
  Receipt Date: 20131205
  Transmission Date: 20140711
  Serious: Yes (Other)
  Sender: FDA-Public Use
  Company Number: None

PATIENT
  Age: 65 Year
  Sex: Female

DRUGS (5)
  1. AVANDIA [Suspect]
     Indication: TYPE 2 DIABETES MELLITUS
     Route: 048
  2. AVANDIA [Concomitant]
  3. LISINOPRIL [Concomitant]
  4. THLORTHALIDONE [Concomitant]
  5. AVANDIA [Concomitant]

REACTIONS (3)
  - Pruritus [None]
  - Dyspnoea [None]
  - Blood pressure increased [None]
